FAERS Safety Report 13463845 (Version 1)
Quarter: 2017Q2

REPORT INFORMATION
  Report Type: Spontaneous
  Country: US (occurrence: US)
  Receive Date: 20170420
  Receipt Date: 20170420
  Transmission Date: 20170830
  Serious: Yes (Other)
  Sender: FDA-Public Use
  Company Number: US-ROCHE-591568

PATIENT
  Age: 15 Year
  Sex: Male
  Weight: 72.6 kg

DRUGS (3)
  1. CLARAVIS [Suspect]
     Active Substance: ISOTRETINOIN
     Indication: ACNE
     Route: 065
     Dates: start: 200510, end: 20051121
  2. ACCUTANE [Suspect]
     Active Substance: ISOTRETINOIN
     Indication: ACNE
     Route: 065
     Dates: start: 20051121, end: 20051221
  3. CLARAVIS [Suspect]
     Active Substance: ISOTRETINOIN
     Route: 065
     Dates: start: 200512, end: 200603

REACTIONS (9)
  - Crohn^s disease [Recovering/Resolving]
  - Inflammatory bowel disease [Unknown]
  - Xerosis [Unknown]
  - Colitis ulcerative [Unknown]
  - Neck pain [Unknown]
  - Lip dry [Unknown]
  - Back pain [Unknown]
  - Arthralgia [Unknown]
  - Arthralgia [Recovered/Resolved]

NARRATIVE: CASE EVENT DATE: 20051121
